FAERS Safety Report 7001933-2 (Version None)
Quarter: 2010Q3

REPORT INFORMATION
  Report Type: 
  Country: None (occurrence: None)
  Receive Date: 20100920
  Receipt Date: 20100910
  Transmission Date: 20110219
  Serious: Yes (Hospitalization, Disabling)
  Sender: FDA-Public Use
  Company Number: A0833396A

PATIENT
  Age: 50 Year
  Sex: Male
  Weight: 100 kg

DRUGS (1)
  1. AVANDIA [Suspect]
     Route: 048
     Dates: start: 19990101, end: 20050101

REACTIONS (5)
  - ABASIA [None]
  - APHASIA [None]
  - CEREBROVASCULAR ACCIDENT [None]
  - DECREASED ACTIVITY [None]
  - PARALYSIS [None]
